FAERS Safety Report 14279195 (Version 2)
Quarter: 2017Q4

REPORT INFORMATION
  Report Type: Spontaneous
  Country: US (occurrence: US)
  Receive Date: 20171212
  Receipt Date: 20171221
  Transmission Date: 20180321
  Serious: Yes (Hospitalization, Other)
  Sender: FDA-Public Use
  Company Number: US-SAOL THERAPEUTICS-2017SAO03381

PATIENT
  Age: 44 Year
  Sex: Male
  Weight: 83.9 kg

DRUGS (47)
  1. COMPOUNDED BACLOFEN [Suspect]
     Active Substance: BACLOFEN
     Indication: COMPLEX REGIONAL PAIN SYNDROME
     Dosage: 525.77 ?G, \DAY; MAX DOSE
     Route: 037
     Dates: start: 20170524, end: 20170725
  2. COMPOUNDED BACLOFEN [Suspect]
     Active Substance: BACLOFEN
     Dosage: 545.48 ?G, \DAY; MAX DOSE
     Route: 037
     Dates: start: 20170725, end: 20170920
  3. CLONIDINE. [Suspect]
     Active Substance: CLONIDINE
     Dosage: 174.85 ?G, \DAY
     Route: 037
     Dates: start: 20170524
  4. BUPIVACAINE. [Suspect]
     Active Substance: BUPIVACAINE
     Dosage: 17.046 MG, \DAY; MAX DOSE
     Route: 037
     Dates: start: 20170725, end: 20170920
  5. LYRICA [Concomitant]
     Active Substance: PREGABALIN
     Dosage: 200 MG, \DAY
     Route: 048
     Dates: start: 20141111
  6. LYRICA [Concomitant]
     Active Substance: PREGABALIN
     Dosage: 300 MG, UNK
     Route: 048
     Dates: start: 20160426
  7. ZANAFLEX [Concomitant]
     Active Substance: TIZANIDINE HYDROCHLORIDE
     Dosage: 6 MG, 1X/DAY
     Route: 048
     Dates: start: 20150805
  8. CBD OIL [Concomitant]
     Active Substance: CANNABIDIOL
     Dosage: UNK
     Route: 061
     Dates: start: 2016
  9. COMPOUNDED BACLOFEN [Suspect]
     Active Substance: BACLOFEN
     Indication: PAIN
     Dosage: 349.70 ?G, \DAY
     Route: 037
     Dates: start: 20170524
  10. CLONIDINE. [Suspect]
     Active Substance: CLONIDINE
     Dosage: 272.74 ?G, \DAY; MAX DOSE
     Route: 037
     Dates: start: 20170725, end: 20170920
  11. COMPOUNDED BACLOFEN [Suspect]
     Active Substance: BACLOFEN
     Dosage: 520.12 ?G, \DAY; MAX DOSE
     Route: 037
     Dates: start: 20171120
  12. COLACE [Concomitant]
     Active Substance: DOCUSATE SODIUM
     Dosage: 200 MG, 2X/DAY
     Route: 048
     Dates: start: 20130111
  13. DEPAKOTE DR/EC [Concomitant]
     Dosage: 125 MG, 1X/DAY
     Route: 048
     Dates: start: 20160907
  14. DILAUDID [Concomitant]
     Active Substance: HYDROMORPHONE HYDROCHLORIDE
     Dosage: 4 MG, 1X/DAY
     Route: 048
     Dates: start: 20150129
  15. COMPOUNDED BACLOFEN [Suspect]
     Active Substance: BACLOFEN
     Dosage: 350 ?G, \DAY
     Dates: start: 20171120
  16. CLONIDINE. [Suspect]
     Active Substance: CLONIDINE
     Dosage: 267.35 ?G, \DAY; MAX DOSE
     Route: 037
     Dates: start: 20170920, end: 20171120
  17. BUPIVACAINE. [Suspect]
     Active Substance: BUPIVACAINE
     Dosage: 16.430 MG, \DAY; MAX DOSE
     Route: 037
     Dates: start: 20170524, end: 20170725
  18. BUSPIRONE [Concomitant]
     Active Substance: BUSPIRONE HYDROCHLORIDE
     Dosage: 1 TAB AM/PM, 2 TABS AT HS
     Route: 048
     Dates: start: 20170316
  19. METHADONE [Concomitant]
     Active Substance: METHADONE HYDROCHLORIDE
     Dosage: 10 MG, 1X/DAY
     Route: 048
     Dates: start: 20150211
  20. CYMBALTA [Concomitant]
     Active Substance: DULOXETINE HYDROCHLORIDE
     Dosage: 60 MG, \DAY
     Route: 048
     Dates: start: 20160408
  21. TRAMADOL. [Concomitant]
     Active Substance: TRAMADOL
     Dosage: 4 UNK, UNK
     Dates: start: 20160408
  22. FENTANYL TRANSDERMAL SYSTEM [Suspect]
     Active Substance: FENTANYL
     Dosage: UNK
     Route: 062
     Dates: end: 201709
  23. COMPOUNDED BACLOFEN [Suspect]
     Active Substance: BACLOFEN
     Dosage: 534.70 ?G, \DAY; MAX DOSE
     Route: 037
     Dates: start: 20170920, end: 20171120
  24. CLONIDINE. [Suspect]
     Active Substance: CLONIDINE
     Dosage: 260.06 ?G, \DAY; MAX DOSE
     Route: 037
     Dates: start: 20171120
  25. DIAZEPAM. [Concomitant]
     Active Substance: DIAZEPAM
     Dosage: 2 MG, 1X/DAY
     Route: 048
     Dates: start: 20151208
  26. BACLOFEN. [Concomitant]
     Active Substance: BACLOFEN
     Dosage: UNK
     Route: 048
     Dates: end: 20160111
  27. ROCEPHIN [Concomitant]
     Active Substance: CEFTRIAXONE SODIUM
     Dosage: UNK
     Route: 042
     Dates: start: 201609
  28. MAGNESIUM [Concomitant]
     Active Substance: MAGNESIUM
  29. LIDOCAINE. [Concomitant]
     Active Substance: LIDOCAINE
  30. BUPIVACAINE. [Suspect]
     Active Substance: BUPIVACAINE
     Route: 037
  31. CLONIDINE. [Suspect]
     Active Substance: CLONIDINE
     Dosage: 262.89 ?G, \DAY; MAX DOSE
     Route: 037
     Dates: start: 20170524, end: 20170725
  32. BUPIVACAINE. [Suspect]
     Active Substance: BUPIVACAINE
     Dosage: 16.709 MG, \DAY; MAX DOSE
     Route: 037
     Dates: start: 20170920, end: 20171120
  33. BUPIVACAINE. [Suspect]
     Active Substance: BUPIVACAINE
     Dosage: 16.254 MG, \DAY; MAX DOSE
     Route: 037
     Dates: start: 20171120
  34. FENTANYL. [Suspect]
     Active Substance: FENTANYL
     Dosage: UNK
     Route: 037
     Dates: start: 20151021, end: 20160310
  35. CLONIDINE HCL [Concomitant]
     Active Substance: CLONIDINE HYDROCHLORIDE
     Dosage: 0.1 MG, 1X/DAY
     Route: 048
     Dates: start: 20160202
  36. LOW DOSE NALTREXONE [Concomitant]
     Active Substance: NALTREXONE
     Dosage: 4.5 MG, 1X/DAY
     Route: 048
     Dates: start: 20160919
  37. LYRICA [Concomitant]
     Active Substance: PREGABALIN
     Dosage: 200 MG, UNK
     Route: 048
     Dates: start: 20160426
  38. VENLAFAXINE [Concomitant]
     Active Substance: VENLAFAXINE HYDROCHLORIDE
     Dosage: 25 MG, 1X/DAY
     Route: 048
     Dates: start: 20140915
  39. OSSICLE  IVIG [Concomitant]
     Dosage: UNK
     Route: 042
     Dates: start: 201609, end: 201612
  40. ZOMETA INTRAVENOUS [Concomitant]
     Route: 042
  41. KETAMINE [Suspect]
     Active Substance: KETAMINE
     Route: 042
  42. CLONIDINE. [Suspect]
     Active Substance: CLONIDINE
     Route: 037
  43. PRIALT [Suspect]
     Active Substance: ZICONOTIDE ACETATE
     Route: 037
  44. BUPIVACAINE. [Suspect]
     Active Substance: BUPIVACAINE
     Dosage: 10.928 MG, \DAY
     Route: 037
     Dates: start: 20170524
  45. CELEBREX [Concomitant]
     Active Substance: CELECOXIB
     Dosage: 200 MG, 1X/DAY
     Route: 048
     Dates: start: 20160426
  46. CLONAZEPAM. [Concomitant]
     Active Substance: CLONAZEPAM
     Dosage: 1 MG, 1X/DAY
     Route: 048
     Dates: start: 20170316
  47. MORPHINE SULFATE ORAL, IMMEDIATE RELEASE (MSIR) [Suspect]
     Active Substance: MORPHINE SULFATE
     Dosage: 4 UNK, \DAY

REACTIONS (23)
  - Pain in extremity [Unknown]
  - Neck pain [Unknown]
  - Pain [Recovered/Resolved]
  - Back pain [Unknown]
  - Hyperaesthesia [None]
  - Off label use [Unknown]
  - Lyme disease [Unknown]
  - Burning sensation [Unknown]
  - Temperature regulation disorder [Unknown]
  - Depression [Unknown]
  - Osteoporosis [Unknown]
  - Muscle spasms [Unknown]
  - Decubitus ulcer [Unknown]
  - Abdominal pain upper [Unknown]
  - Musculoskeletal stiffness [Unknown]
  - Hyperhidrosis [Unknown]
  - Diarrhoea [Unknown]
  - Intentional overdose [Unknown]
  - Dizziness [Unknown]
  - Suicide attempt [Unknown]
  - Drug withdrawal syndrome [Unknown]
  - Hallucination [Unknown]
  - Nausea [Unknown]

NARRATIVE: CASE EVENT DATE: 201011
